FAERS Safety Report 21308183 (Version 1)
Quarter: 2022Q3

REPORT INFORMATION
  Report Type: Spontaneous
  Country: TR (occurrence: TR)
  Receive Date: 20220908
  Receipt Date: 20220908
  Transmission Date: 20221026
  Serious: Yes (Hospitalization, Other)
  Sender: FDA-Public Use
  Company Number: TR-SLATE RUN PHARMACEUTICALS-22TR001298

PATIENT

DRUGS (12)
  1. BUPROPION HYDROCHLORIDE [Interacting]
     Active Substance: BUPROPION HYDROCHLORIDE
     Indication: Smoking cessation therapy
     Dosage: 2250 MILLIGRAM, QD
     Route: 048
  2. BUPROPION HYDROCHLORIDE [Interacting]
     Active Substance: BUPROPION HYDROCHLORIDE
     Dosage: USING IN THE SAME MANNER
     Route: 048
  3. BUPROPION HYDROCHLORIDE [Interacting]
     Active Substance: BUPROPION HYDROCHLORIDE
     Dosage: 750-1500 MILLIGRAM, QD
     Route: 048
  4. BUPROPION HYDROCHLORIDE [Interacting]
     Active Substance: BUPROPION HYDROCHLORIDE
     Dosage: 450-750 MILLIGRAM, QD
     Route: 048
  5. BUPROPION HYDROCHLORIDE [Interacting]
     Active Substance: BUPROPION HYDROCHLORIDE
     Dosage: 300 MILLIGRAM, QD
     Route: 048
  6. BUPROPION HYDROCHLORIDE [Interacting]
     Active Substance: BUPROPION HYDROCHLORIDE
     Dosage: UNK
  7. ALCOHOL [Interacting]
     Active Substance: ALCOHOL
     Indication: Alcohol use
     Route: 048
  8. VENLAFAXINE [Concomitant]
     Active Substance: VENLAFAXINE HYDROCHLORIDE
     Indication: Product used for unknown indication
     Dosage: UNK
  9. VENLAFAXINE [Concomitant]
     Active Substance: VENLAFAXINE HYDROCHLORIDE
     Indication: Major depression
     Dosage: 150 MILLIGRAM, QD
  10. METHYLPHENIDATE [Concomitant]
     Active Substance: METHYLPHENIDATE
     Indication: Product used for unknown indication
     Dosage: 54 MILLIGRAM, QD
  11. ALPRAZOLAM [Concomitant]
     Active Substance: ALPRAZOLAM
     Indication: Anxiety
  12. ALPRAZOLAM [Concomitant]
     Active Substance: ALPRAZOLAM
     Indication: Insomnia

REACTIONS (30)
  - Substance use disorder [Recovering/Resolving]
  - Alcohol use disorder [Recovering/Resolving]
  - Overdose [Recovered/Resolved]
  - Therapeutic response unexpected [Recovering/Resolving]
  - Intentional product misuse [Recovering/Resolving]
  - Drug abuse [Recovering/Resolving]
  - Withdrawal syndrome [Recovering/Resolving]
  - Hepatic enzyme increased [Unknown]
  - Blood cholesterol increased [Unknown]
  - Alcoholism [Recovering/Resolving]
  - Drug tolerance [Recovering/Resolving]
  - Potentiating drug interaction [Recovering/Resolving]
  - Fear [Recovering/Resolving]
  - Hypoaesthesia [Recovering/Resolving]
  - Alcohol withdrawal syndrome [Recovering/Resolving]
  - Off label use [Recovered/Resolved]
  - Irritability [Recovering/Resolving]
  - Psychomotor hyperactivity [Recovering/Resolving]
  - Euphoric mood [Recovering/Resolving]
  - Anxiety [Recovering/Resolving]
  - Panic attack [Recovering/Resolving]
  - Insomnia [Recovering/Resolving]
  - Tremor [Recovering/Resolving]
  - Hyperhidrosis [Recovering/Resolving]
  - Flushing [Recovering/Resolving]
  - Agitation [Recovering/Resolving]
  - Sinus tachycardia [Recovered/Resolved]
  - Depersonalisation/derealisation disorder [Recovering/Resolving]
  - Major depression [Recovering/Resolving]
  - Palpitations [Recovering/Resolving]
